FAERS Safety Report 9379981 (Version 3)
Quarter: 2013Q3

REPORT INFORMATION
  Report Type: Spontaneous
  Country: PL (occurrence: PL)
  Receive Date: 20130702
  Receipt Date: 20130814
  Transmission Date: 20140515
  Serious: Yes (Other)
  Sender: FDA-Public Use
  Company Number: PL-ROCHE-1239510

PATIENT
  Sex: Male
  Weight: 80 kg

DRUGS (2)
  1. MABTHERA [Suspect]
     Indication: HODGKIN^S DISEASE
     Route: 042
     Dates: start: 20130410, end: 20130528
  2. BENDAMUSTINE [Concomitant]
     Indication: HODGKIN^S DISEASE
     Route: 042
     Dates: start: 20130528

REACTIONS (5)
  - Metastases to central nervous system [Unknown]
  - Amblyopia [Unknown]
  - VIIth nerve paralysis [Unknown]
  - Aphasia [Unknown]
  - Hypoaesthesia [Unknown]
